FAERS Safety Report 21592387 (Version 1)
Quarter: 2022Q4

REPORT INFORMATION
  Report Type: Report from Study
  Country: US (occurrence: US)
  Receive Date: 20221114
  Receipt Date: 20221114
  Transmission Date: 20230113
  Serious: No
  Sender: FDA-Public Use
  Company Number: US-KADMON-US-KAD-22-00824

PATIENT
  Sex: Male

DRUGS (17)
  1. REZUROCK [Suspect]
     Active Substance: BELUMOSUDIL
     Indication: Chronic graft versus host disease in skin
     Dosage: 200 MILLIGRAM AT 20:00 AFTER DINNER,QD
     Route: 065
     Dates: start: 20220729
  2. REZUROCK [Suspect]
     Active Substance: BELUMOSUDIL
     Dosage: 200 MILLIGRAM,AT 20:00 AFTER DINNER, QD
     Route: 065
  3. PREDNISONE [Suspect]
     Active Substance: PREDNISONE
     Indication: Product used for unknown indication
     Dosage: UNK, UNK
     Route: 065
  4. SINGULAIR [Concomitant]
     Active Substance: MONTELUKAST SODIUM
     Indication: Product used for unknown indication
  5. ACYCLOVIR [Concomitant]
     Active Substance: ACYCLOVIR
     Indication: Product used for unknown indication
  6. BACTRIM [Concomitant]
     Active Substance: SULFAMETHOXAZOLE\TRIMETHOPRIM
     Indication: Product used for unknown indication
  7. VITAMIN D2 [Concomitant]
     Active Substance: ERGOCALCIFEROL
     Indication: Product used for unknown indication
  8. OLANZAPINE [Concomitant]
     Active Substance: OLANZAPINE
     Indication: Product used for unknown indication
  9. FLOVENT [Concomitant]
     Active Substance: FLUTICASONE PROPIONATE
     Indication: Product used for unknown indication
  10. IPRATROPIUM BROMIDE [Concomitant]
     Active Substance: IPRATROPIUM BROMIDE
     Indication: Product used for unknown indication
  11. CLOBETASOL [CLOBETASOL PROPIONATE] [Concomitant]
     Indication: Product used for unknown indication
     Dosage: UNK, PRN
  12. HYDROCORTISONE [Concomitant]
     Active Substance: HYDROCORTISONE
     Indication: Product used for unknown indication
     Dosage: UNK, PRN
  13. TRIAMCINOLONE [Concomitant]
     Active Substance: TRIAMCINOLONE
     Indication: Product used for unknown indication
     Dosage: UNK, PRN
     Route: 061
  14. UREA [Concomitant]
     Active Substance: UREA
     Indication: Product used for unknown indication
     Dosage: UNK, PRN
  15. FLUNISOLIDE [Concomitant]
     Active Substance: FLUNISOLIDE
     Indication: Product used for unknown indication
     Dosage: UNK, PRN
  16. DEXAMETHASONE [Concomitant]
     Active Substance: DEXAMETHASONE
     Indication: Product used for unknown indication
     Dosage: UNK, PRN
  17. TACROLIMUS [Concomitant]
     Active Substance: TACROLIMUS
     Indication: Product used for unknown indication
     Dosage: UNK, BID

REACTIONS (5)
  - Heart rate increased [Unknown]
  - Blood pressure increased [Unknown]
  - Dyspnoea [Not Recovered/Not Resolved]
  - Contusion [Not Recovered/Not Resolved]
  - Cough [Recovering/Resolving]
